FAERS Safety Report 13580937 (Version 2)
Quarter: 2017Q2

REPORT INFORMATION
  Report Type: Spontaneous
  Country: DE (occurrence: DE)
  Receive Date: 20170525
  Receipt Date: 20170622
  Transmission Date: 20170830
  Serious: Yes (Hospitalization)
  Sender: FDA-Public Use
  Company Number: DE-SA-2017SA090770

PATIENT
  Sex: Female
  Weight: 70 kg

DRUGS (5)
  1. LEMTRADA [Suspect]
     Active Substance: ALEMTUZUMAB
     Indication: RELAPSING-REMITTING MULTIPLE SCLEROSIS
     Route: 041
     Dates: start: 20150519, end: 20150521
  2. LEMTRADA [Suspect]
     Active Substance: ALEMTUZUMAB
     Indication: RELAPSING-REMITTING MULTIPLE SCLEROSIS
     Route: 041
     Dates: start: 20140512, end: 20140516
  3. BACLOFEN. [Suspect]
     Active Substance: BACLOFEN
     Route: 065
  4. LOPEDIUM [Concomitant]
     Active Substance: LOPERAMIDE
     Indication: DIARRHOEA
     Route: 048
  5. NEUREXAN [Concomitant]
     Active Substance: HOMEOPATHICS
     Indication: RESTLESSNESS
     Route: 048

REACTIONS (13)
  - White blood cells urine positive [Unknown]
  - Gingival bleeding [Recovered/Resolved]
  - Liver function test increased [Unknown]
  - Platelet count decreased [Recovered/Resolved]
  - Immune thrombocytopenic purpura [Recovered/Resolved]
  - Epistaxis [Recovered/Resolved]
  - Sinus tachycardia [Unknown]
  - Petechiae [Recovered/Resolved]
  - Thyroiditis subacute [Unknown]
  - Red blood cells urine positive [Unknown]
  - Hyperthyroidism [Unknown]
  - Hypothyroidism [Recovered/Resolved]
  - Multiple sclerosis relapse [Unknown]

NARRATIVE: CASE EVENT DATE: 201601
